FAERS Safety Report 18276911 (Version 1)
Quarter: 2020Q3

REPORT INFORMATION
  Report Type: Spontaneous
  Country: DK (occurrence: DK)
  Receive Date: 20200917
  Receipt Date: 20200917
  Transmission Date: 20201103
  Serious: Yes (Hospitalization)
  Sender: FDA-Public Use
  Company Number: NVSC2020DK249190

PATIENT
  Age: 67 Year
  Sex: Male

DRUGS (8)
  1. MAGNESIUM HYDROXIDE. [Concomitant]
     Active Substance: MAGNESIUM HYDROXIDE
     Indication: CONSTIPATION
     Dosage: 1000 MG, QD
     Route: 048
     Dates: start: 20180323
  2. LOSARTAN. [Concomitant]
     Active Substance: LOSARTAN
     Indication: HYPERTENSION
     Dosage: 50 MG, QD
     Route: 048
     Dates: start: 20180426
  3. ALFUZOSIN [Concomitant]
     Active Substance: ALFUZOSIN
     Indication: DYSURIA
     Dosage: 2.5 MG, QD (START DATE UNKNOWN, BUT AT LEAST SINCE MAR 2019)
     Route: 048
  4. PARACETAMOL [Concomitant]
     Active Substance: ACETAMINOPHEN
     Indication: PAIN
     Dosage: 1000 MG, PRN (START DATE UNKNOWN, BUT AT LEAST SINCE DEC 2018)
     Route: 048
  5. CLOPIDOGREL [Concomitant]
     Active Substance: CLOPIDOGREL BISULFATE
     Indication: THROMBOSIS PROPHYLAXIS
     Dosage: 75 MG, QD
     Route: 048
     Dates: start: 20170901
  6. ATORVASTATIN [Concomitant]
     Active Substance: ATORVASTATIN
     Indication: HYPERCHOLESTEROLAEMIA
     Dosage: 80 MG, QD (START DATE UNKNOWN, BUT AT LEAST SINCE FEB 2018)
     Route: 048
  7. DICLOXACILLIN [Suspect]
     Active Substance: DICLOXACILLIN
     Indication: DRUG PROVOCATION TEST
     Dosage: UNK, TITRATION WITH 555 MG, RECEIVED 3 DOSES, STRENGTH UNKNOWN
     Route: 048
     Dates: start: 20200813, end: 20200813
  8. AMITRIPTYLINE [Concomitant]
     Active Substance: AMITRIPTYLINE
     Indication: NEURALGIA
     Dosage: 10 MG, QD
     Route: 048
     Dates: start: 20190222

REACTIONS (9)
  - Sensation of foreign body [Recovered/Resolved]
  - Erythema [Unknown]
  - Pruritus [Unknown]
  - Oropharyngeal pain [Unknown]
  - Secretion discharge [Unknown]
  - Swollen tongue [Unknown]
  - Hypersensitivity [Unknown]
  - Periorbital oedema [Recovered/Resolved]
  - Palatal oedema [Unknown]

NARRATIVE: CASE EVENT DATE: 202008
